FAERS Safety Report 5445607-8 (Version None)
Quarter: 2007Q3

REPORT INFORMATION
  Report Type: 
  Country: None (occurrence: None)
  Receive Date: 20070906
  Receipt Date: 20070827
  Transmission Date: 20080115
  Serious: Yes (Hospitalization)
  Sender: FDA-Public Use
  Company Number: BE-ABBOTT-07P-013-0415362-00

PATIENT
  Sex: Female

DRUGS (8)
  1. HUMIRA [Suspect]
     Indication: RHEUMATOID ARTHRITIS
     Route: 058
  2. METHOTREXATE [Concomitant]
     Indication: ARTHRITIS
  3. FOLIC ACID [Concomitant]
     Indication: ARTHRITIS
  4. ATORVASTATIN CALCIUM [Concomitant]
     Indication: ARTHRITIS
  5. METHYLPREDNISOLONE 16MG TAB [Concomitant]
     Indication: ARTHRITIS
  6. IBANDRONATE SODIUM [Concomitant]
     Indication: ARTHRITIS
  7. CA++ [Concomitant]
     Indication: ARTHRITIS
  8. PRINZIDE [Concomitant]
     Indication: ARTHRITIS

REACTIONS (1)
  - ILIAC ARTERY STENOSIS [None]
